FAERS Safety Report 17345345 (Version 3)
Quarter: 2020Q3

REPORT INFORMATION
  Report Type: Spontaneous
  Country: AU (occurrence: AU)
  Receive Date: 20200129
  Receipt Date: 20200901
  Transmission Date: 20201102
  Serious: Yes (Death, Life-Threatening, Other)
  Sender: FDA-Public Use
  Company Number: AU-MYLANLABS-2020M1011301

PATIENT
  Age: 35 Year
  Sex: Male

DRUGS (13)
  1. CLOPINE [Suspect]
     Active Substance: CLOZAPINE
     Indication: MENTAL DISORDER
     Dosage: 25 MILLIGRAM, QD
     Dates: start: 2002
  2. CLOPINE [Suspect]
     Active Substance: CLOZAPINE
     Dosage: UNK
     Dates: start: 20130527, end: 20140424
  3. THYROXINE [Suspect]
     Active Substance: LEVOTHYROXINE
     Indication: MENTAL DISORDER
     Dosage: UNK
  4. ATROPINE. [Suspect]
     Active Substance: ATROPINE
     Indication: MENTAL DISORDER
  5. CLOPINE [Suspect]
     Active Substance: CLOZAPINE
     Dosage: 600 MILLIGRAM, QD
     Dates: start: 2007
  6. CLONAZEPAM. [Suspect]
     Active Substance: CLONAZEPAM
     Indication: MENTAL DISORDER
     Dosage: UNK
  7. LEVETIRACETAM. [Suspect]
     Active Substance: LEVETIRACETAM
     Indication: MENTAL DISORDER
     Dosage: UNK
  8. CLOPINE [Suspect]
     Active Substance: CLOZAPINE
     Dosage: 500 UNK
     Dates: start: 200408
  9. CLOPINE [Suspect]
     Active Substance: CLOZAPINE
     Dosage: 500 MILLIGRAM, QD
     Dates: start: 201103
  10. LITHIUM CARBONATE. [Suspect]
     Active Substance: LITHIUM CARBONATE
     Indication: MENTAL DISORDER
     Dosage: UNK
  11. HYOSCINE [Suspect]
     Active Substance: SCOPOLAMINE
     Indication: MENTAL DISORDER
     Dosage: UNK
  12. PERINDOPRIL [Suspect]
     Active Substance: PERINDOPRIL
     Indication: MENTAL DISORDER
     Dosage: UNK
  13. CLOPINE [Suspect]
     Active Substance: CLOZAPINE
     Dosage: 600 MILLIGRAM, QD
     Dates: start: 2010

REACTIONS (3)
  - Agranulocytosis [Unknown]
  - Gastrointestinal hypomotility [Fatal]
  - Myocarditis [Unknown]
